FAERS Safety Report 21461691 (Version 1)
Quarter: 2022Q4

REPORT INFORMATION
  Report Type: Report from Study
  Country: US (occurrence: US)
  Receive Date: 20221015
  Receipt Date: 20221015
  Transmission Date: 20230113
  Serious: No
  Sender: FDA-Public Use
  Company Number: US-ABBVIE-4142757

PATIENT
  Sex: Female

DRUGS (1)
  1. ORIAHNN [Suspect]
     Active Substance: ELAGOLIX SODIUM\ESTRADIOL\NORETHINDRONE
     Indication: Product used for unknown indication
     Dosage: 300MG
     Route: 048
     Dates: start: 20220911

REACTIONS (3)
  - Menstruation irregular [Unknown]
  - Fatigue [Unknown]
  - Headache [Unknown]
